FAERS Safety Report 4317080-4 (Version None)
Quarter: 2004Q1

REPORT INFORMATION
  Report Type: 
  Country: None (occurrence: None)
  Receive Date: 20040312
  Receipt Date: 20040224
  Transmission Date: 20041129
  Serious: Yes (Life-Threatening)
  Sender: FDA-Public Use
  Company Number: 8005666

PATIENT
  Age: 19 Year
  Sex: Male
  Weight: 55 kg

DRUGS (3)
  1. KEPPRA [Suspect]
     Dosage: 3 G PO
     Route: 048
  2. TOPIRAMATE [Suspect]
     Dosage: 25 MG PO
     Route: 048
  3. URBANYL [Suspect]
     Dosage: 10 MG PO
     Route: 048

REACTIONS (28)
  - ASPIRATION TRACHEAL ABNORMAL [None]
  - BACILLUS INFECTION [None]
  - BACTERIAL INFECTION [None]
  - BLADDER DISTENSION [None]
  - BLOOD PRESSURE SYSTOLIC DECREASED [None]
  - C-REACTIVE PROTEIN INCREASED [None]
  - COMA [None]
  - CYANOSIS [None]
  - CYTOLYTIC HEPATITIS [None]
  - DRUG INEFFECTIVE [None]
  - ESCHERICHIA INFECTION [None]
  - HEART RATE INCREASED [None]
  - HYPOKALAEMIA [None]
  - LUNG DISORDER [None]
  - NASOPHARYNGEAL DISORDER [None]
  - OBSTRUCTION [None]
  - OEDEMA PERIPHERAL [None]
  - PERIPHERAL COLDNESS [None]
  - PNEUMOCOCCAL INFECTION [None]
  - PYREXIA [None]
  - RALES [None]
  - RASH MACULAR [None]
  - SOMNOLENCE [None]
  - STAPHYLOCOCCAL INFECTION [None]
  - STATUS EPILEPTICUS [None]
  - STREPTOCOCCAL INFECTION [None]
  - THROMBOCYTOPENIA [None]
  - TONGUE DISORDER [None]
